FAERS Safety Report 9772657 (Version 1)
Quarter: 2013Q4

REPORT INFORMATION
  Report Type: Spontaneous
  Country: ES (occurrence: ES)
  Receive Date: 20131219
  Receipt Date: 20131219
  Transmission Date: 20140711
  Serious: Yes (Hospitalization)
  Sender: FDA-Public Use
  Company Number: ES-JNJFOC-20131208619

PATIENT
  Age: 81 Year
  Sex: Female

DRUGS (1)
  1. GALANTAMINE [Suspect]
     Indication: DEMENTIA ALZHEIMER^S TYPE
     Route: 065

REACTIONS (1)
  - Acute generalised exanthematous pustulosis [Recovered/Resolved]
